FAERS Safety Report 11483420 (Version 1)
Quarter: 2015Q3

REPORT INFORMATION
  Report Type: Spontaneous
  Country: US (occurrence: None)
  Receive Date: 20150909
  Receipt Date: 20150909
  Transmission Date: 20151125
  Serious: Yes (Death)
  Sender: FDA-Public Use
  Company Number: None

PATIENT
  Age: 76 Year
  Sex: Male
  Weight: 96 kg

DRUGS (24)
  1. FUROSEMIDE. [Concomitant]
     Active Substance: FUROSEMIDE
  2. LEVOFLOXACIN. [Concomitant]
     Active Substance: LEVOFLOXACIN
  3. LORATADINE. [Concomitant]
     Active Substance: LORATADINE
  4. OXYCODONE [Concomitant]
     Active Substance: OXYCODONE
  5. POSACONAZOLE [Concomitant]
     Active Substance: POSACONAZOLE
  6. POTASSIUM CHLORIDE. [Concomitant]
     Active Substance: POTASSIUM CHLORIDE
  7. VITAMIN B-12-FOLIC ACID [Concomitant]
  8. ACETAMINOPHEN. [Concomitant]
     Active Substance: ACETAMINOPHEN
  9. ACYCLOVIR. [Concomitant]
     Active Substance: ACYCLOVIR
  10. SIMVASTATIN. [Concomitant]
     Active Substance: SIMVASTATIN
  11. FLUTICASONE [Concomitant]
     Active Substance: FLUTICASONE\FLUTICASONE PROPIONATE
  12. SERTRALINE [Concomitant]
     Active Substance: SERTRALINE HYDROCHLORIDE
  13. NYSTATIN. [Concomitant]
     Active Substance: NYSTATIN
  14. TAMSULOSIN [Concomitant]
     Active Substance: TAMSULOSIN
  15. FINASTERIDE. [Concomitant]
     Active Substance: FINASTERIDE
  16. GABAPENTIN. [Concomitant]
     Active Substance: GABAPENTIN
  17. MIRABEGRON [Concomitant]
     Active Substance: MIRABEGRON
  18. MULTIVITAMIN [Concomitant]
     Active Substance: VITAMINS
  19. POLYETHYLENE GLYCOL [Concomitant]
     Active Substance: POLYETHYLENE GLYCOLS
  20. SENNA-DOCUSATE [Concomitant]
  21. RUXOLITINIB [Suspect]
     Active Substance: RUXOLITINIB
     Indication: CHRONIC MYELOID LEUKAEMIA
     Route: 048
     Dates: start: 20150826, end: 20150905
  22. ALLOPURINOL. [Concomitant]
     Active Substance: ALLOPURINOL
  23. ALBUTEROL. [Concomitant]
     Active Substance: ALBUTEROL
  24. CELECOXIB. [Concomitant]
     Active Substance: CELECOXIB

REACTIONS (3)
  - Asthenia [None]
  - Malignant neoplasm progression [None]
  - General physical health deterioration [None]

NARRATIVE: CASE EVENT DATE: 20150905
